FAERS Safety Report 6862563-6 (Version None)
Quarter: 2010Q3

REPORT INFORMATION
  Report Type: 
  Country: None (occurrence: None)
  Receive Date: 20100721
  Receipt Date: 20100714
  Transmission Date: 20110219
  Serious: Yes (Death)
  Sender: FDA-Public Use
  Company Number: US-GILEAD-2010-0030444

PATIENT
  Age: 72 Year
  Sex: Male
  Weight: 68.1 kg

DRUGS (12)
  1. LETAIRIS [Suspect]
     Indication: PULMONARY ARTERIAL HYPERTENSION
     Route: 048
     Dates: start: 20090715
  2. SILDENAFIL CITRATE [Concomitant]
  3. FUROSEMIDE [Concomitant]
  4. OXYGEN [Concomitant]
  5. PREDNISONE [Concomitant]
  6. FORADIL [Concomitant]
  7. SPIRIVA [Concomitant]
  8. DILTIAZEM [Concomitant]
  9. COUMADIN [Concomitant]
  10. NEXIUM [Concomitant]
  11. LEVOTHYROXINE SODIUM [Concomitant]
  12. VITAMIN D [Concomitant]

REACTIONS (1)
  - DEATH [None]
